FAERS Safety Report 7287729-5 (Version None)
Quarter: 2011Q1

REPORT INFORMATION
  Report Type: 
  Country: None (occurrence: None)
  Receive Date: 20110211
  Receipt Date: 20110210
  Transmission Date: 20110831
  Serious: Yes (Hospitalization)
  Sender: FDA-Public Use
  Company Number: US-ROXANE LABORATORIES, INC.-2011-RO-00168RO

PATIENT
  Sex: Male
  Weight: 75 kg

DRUGS (2)
  1. COLCHICINE [Suspect]
     Indication: JOINT INJURY
     Dates: start: 20110101
  2. PREDNISONE TAB [Suspect]
     Indication: JOINT INJURY
     Dates: start: 20110101

REACTIONS (1)
  - GASTRIC ULCER HAEMORRHAGE [None]
